FAERS Safety Report 4527567-7 (Version None)
Quarter: 2004Q4

REPORT INFORMATION
  Report Type: 
  Country: None (occurrence: None)
  Receive Date: 20041130
  Receipt Date: 20040929
  Transmission Date: 20050328
  Serious: No
  Sender: FDA-Public Use
  Company Number: WAES 0410USA00020

PATIENT
  Age: 73 Year
  Sex: Male

DRUGS (3)
  1. ZETIA [Suspect]
     Indication: BLOOD CHOLESTEROL INCREASED
     Dosage: 10 MG/PO
     Route: 048
     Dates: start: 20040728
  2. SINEMET [Concomitant]
  3. HYDROCHLOROTHIAZIDE (+) SPIRONOL [Concomitant]

REACTIONS (1)
  - CHEST DISCOMFORT [None]
